FAERS Safety Report 22022059 (Version 1)
Quarter: 2023Q1

REPORT INFORMATION
  Report Type: Spontaneous
  Country: FR (occurrence: FR)
  Receive Date: 20230222
  Receipt Date: 20230222
  Transmission Date: 20230417
  Serious: Yes (Other)
  Sender: FDA-Public Use
  Company Number: None

PATIENT
  Age: 39 Year
  Sex: Male

DRUGS (8)
  1. SERTRALINE HYDROCHLORIDE [Suspect]
     Active Substance: SERTRALINE HYDROCHLORIDE
     Indication: Schizophrenia
     Dosage: 100 MILLIGRAM DAILY; 50 MG MORNING AND EVENING
     Dates: start: 202003
  2. CLOZAPINE [Suspect]
     Active Substance: CLOZAPINE
     Indication: Schizophrenia
     Dosage: 300 MILLIGRAM DAILY; 100 MG IN THE MORNING AND 200 MG IN THE EVENING
     Dates: start: 201910
  3. TERALITHE [Suspect]
     Active Substance: LITHIUM CARBONATE
     Indication: Schizophrenia
     Dosage: 800 MILLIGRAM DAILY; 800MG IN THE EVENING, LP ,
     Dates: start: 202003
  4. PALIPERIDONE PALMITATE [Concomitant]
     Active Substance: PALIPERIDONE PALMITATE
     Indication: Schizophrenia
  5. LACTULOSE [Concomitant]
     Active Substance: LACTULOSE
     Indication: Product used for unknown indication
  6. ABILIFY MAINTENA [Concomitant]
     Active Substance: ARIPIPRAZOLE
     Indication: Schizophrenia
  7. MUCOMYS [Concomitant]
     Indication: Product used for unknown indication
     Dosage: IN SACHET
  8. VALIUM [Concomitant]
     Active Substance: DIAZEPAM
     Indication: Product used for unknown indication
     Dosage: SCORED TABLET

REACTIONS (2)
  - Hypertriglyceridaemia [Not Recovered/Not Resolved]
  - Weight [Not Recovered/Not Resolved]

NARRATIVE: CASE EVENT DATE: 20220101
